FAERS Safety Report 26200007 (Version 1)
Quarter: 2025Q4

REPORT INFORMATION
  Report Type: Report from Study
  Country: CO (occurrence: CO)
  Receive Date: 20251225
  Receipt Date: 20251225
  Transmission Date: 20260117
  Serious: Yes (Hospitalization)
  Sender: TAKEDA
  Company Number: CO-TAKEDA-2024TUS086194

PATIENT
  Age: 23 Year
  Sex: Male
  Weight: 69 kg

DRUGS (5)
  1. VEDOLIZUMAB [Suspect]
     Active Substance: VEDOLIZUMAB
     Indication: Colitis ulcerative
     Dosage: 300 MILLIGRAM
     Dates: start: 20240806, end: 20240924
  2. VEDOLIZUMAB [Suspect]
     Active Substance: VEDOLIZUMAB
     Indication: Colitis ulcerative
     Dosage: 108 MILLIGRAM, Q2WEEKS
     Dates: start: 20241119
  3. VEDOLIZUMAB [Suspect]
     Active Substance: VEDOLIZUMAB
  4. VEDOLIZUMAB [Suspect]
     Active Substance: VEDOLIZUMAB
  5. VEDOLIZUMAB [Suspect]
     Active Substance: VEDOLIZUMAB

REACTIONS (13)
  - Vasculitis [Unknown]
  - Weight decreased [Unknown]
  - Cough [Unknown]
  - Tonsillitis [Unknown]
  - Diarrhoea [Not Recovered/Not Resolved]
  - Infection [Recovered/Resolved]
  - Conjunctivitis [Unknown]
  - Treatment noncompliance [Unknown]
  - Inappropriate schedule of product administration [Unknown]
  - Product availability issue [Unknown]
  - Abdominal pain [Unknown]
  - Nasal congestion [Unknown]
  - Headache [Unknown]

NARRATIVE: CASE EVENT DATE: 20250316
